FAERS Safety Report 10418871 (Version 1)
Quarter: 2014Q3

REPORT INFORMATION
  Report Type: Spontaneous
  Country: US (occurrence: US)
  Receive Date: 20140829
  Receipt Date: 20140829
  Transmission Date: 20150326
  Serious: No
  Sender: FDA-Public Use
  Company Number: US-ASTRAZENECA-2013SE81173

PATIENT
  Age: 2 Year
  Sex: Female

DRUGS (1)
  1. MERREM [Suspect]
     Active Substance: MEROPENEM
     Dosage: 254 MILLIGRAMS
     Route: 042
     Dates: start: 2013, end: 2013

REACTIONS (1)
  - Discomfort [Unknown]

NARRATIVE: CASE EVENT DATE: 2013
